FAERS Safety Report 6267958-X (Version None)
Quarter: 2009Q3

REPORT INFORMATION
  Report Type: 
  Country: None (occurrence: None)
  Receive Date: 20090713
  Receipt Date: 20090703
  Transmission Date: 20100115
  Serious: Yes (Hospitalization)
  Sender: FDA-Public Use
  Company Number: 237502K09USA

PATIENT
  Age: 43 Year
  Sex: Female
  Weight: 123 kg

DRUGS (5)
  1. REBIF [Suspect]
     Indication: MULTIPLE SCLEROSIS
     Dosage: 44 MCG, 3 IN 1 WEEKS, SUBCUTANEOUS
     Route: 058
     Dates: start: 20090601, end: 20090629
  2. SIMVASTATIN [Concomitant]
  3. PERCOCET [Concomitant]
  4. L-THYROXINE (LEVOTHYROXINE /00068001/) [Concomitant]
  5. ALEVE (NAPROXEN /00256201/) [Concomitant]

REACTIONS (5)
  - CHILLS [None]
  - FEELING HOT [None]
  - INTERVERTEBRAL DISC PROTRUSION [None]
  - NAUSEA [None]
  - PAIN OF SKIN [None]
